FAERS Safety Report 4343116-0 (Version None)
Quarter: 2004Q2

REPORT INFORMATION
  Report Type: 
  Country: None (occurrence: None)
  Receive Date: 20040421
  Receipt Date: 20040420
  Transmission Date: 20050107
  Serious: Yes (Hospitalization)
  Sender: FDA-Public Use
  Company Number: US-GLAXOSMITHKLINE-A0507661A

PATIENT
  Age: 76 Year
  Sex: Female

DRUGS (5)
  1. NAVELBINE [Suspect]
     Indication: NON-SMALL CELL LUNG CANCER
     Dosage: 30MGM2 WEEKLY
     Route: 042
     Dates: start: 20040206, end: 20040402
  2. OXYCONTIN [Concomitant]
  3. PREDNISONE [Concomitant]
  4. SYNTHROID [Concomitant]
  5. ASPIRIN [Concomitant]

REACTIONS (6)
  - ASTHENIA [None]
  - CONSTIPATION [None]
  - DIFFICULTY IN WALKING [None]
  - MUSCLE CRAMP [None]
  - NEUROPATHY PERIPHERAL [None]
  - STOMACH DISCOMFORT [None]
